FAERS Safety Report 4313208-0 (Version None)
Quarter: 2004Q1

REPORT INFORMATION
  Report Type: 
  Country: None (occurrence: None)
  Receive Date: 20040308
  Receipt Date: 20040225
  Transmission Date: 20041129
  Serious: Yes (Hospitalization)
  Sender: FDA-Public Use
  Company Number: PHBS2004FI02639

PATIENT
  Age: 73 Year
  Sex: Female

DRUGS (2)
  1. LAMISIL [Suspect]
     Indication: ONYCHOMYCOSIS
     Dosage: 250 MG/D
     Route: 048
     Dates: start: 20030523, end: 20030718
  2. OXIKLORIN [Concomitant]
     Indication: RHEUMATOID ARTHRITIS
     Dosage: 300 MG/D
     Route: 048

REACTIONS (4)
  - RASH [None]
  - SKIN BLEEDING [None]
  - SKIN ULCER [None]
  - SYSTEMIC LUPUS ERYTHEMATOSUS [None]
